FAERS Safety Report 9423066 (Version 1)
Quarter: 2013Q3

REPORT INFORMATION
  Report Type: Spontaneous
  Country: FR (occurrence: FR)
  Receive Date: 20130726
  Receipt Date: 20130726
  Transmission Date: 20140515
  Serious: Yes (Hospitalization)
  Sender: FDA-Public Use
  Company Number: FR-GLAXOSMITHKLINE-B0909131A

PATIENT
  Age: 61 Year
  Sex: Female

DRUGS (3)
  1. DEROXAT [Suspect]
     Indication: PRODUCT USED FOR UNKNOWN INDICATION
     Dosage: 1UNIT TWICE PER DAY
     Route: 048
  2. FLANID [Suspect]
     Indication: TOOTHACHE
     Route: 048
     Dates: start: 2013, end: 2013
  3. DEPAMIDE [Concomitant]
     Dosage: 300MG TWICE PER DAY
     Route: 048

REACTIONS (6)
  - Haematemesis [Recovered/Resolved]
  - Melaena [Recovered/Resolved]
  - Gastric ulcer [Unknown]
  - Anaemia [Recovering/Resolving]
  - Gastrointestinal inflammation [Unknown]
  - Drug interaction [Unknown]
